FAERS Safety Report 9172048 (Version 1)
Quarter: 2013Q1

REPORT INFORMATION
  Report Type: Spontaneous
  Country: US (occurrence: US)
  Receive Date: 20130319
  Receipt Date: 20130319
  Transmission Date: 20140127
  Serious: No
  Sender: FDA-Public Use
  Company Number: US-009507513-1303USA008548

PATIENT
  Sex: Female

DRUGS (2)
  1. JANUMET [Suspect]
     Indication: TYPE 2 DIABETES MELLITUS
     Dosage: 50/1000MG TAKEN ONCE DAILY
     Route: 048
     Dates: start: 200803
  2. LIPITOR [Concomitant]

REACTIONS (2)
  - Osteoarthritis [Unknown]
  - Therapeutic response decreased [Unknown]
